FAERS Safety Report 16064464 (Version 1)
Quarter: 2019Q1

REPORT INFORMATION
  Report Type: Spontaneous
  Country: US (occurrence: US)
  Receive Date: 20190312
  Receipt Date: 20190312
  Transmission Date: 20190418
  Serious: No
  Sender: FDA-Public Use
  Company Number: US-B.I. PHARMACEUTICALS,INC./RIDGEFIELD-2019-BI-009880

PATIENT
  Age: 45 Year
  Sex: Female

DRUGS (4)
  1. CARBIDOPA AND LEVODOPA [Concomitant]
     Active Substance: CARBIDOPA\LEVODOPA
     Indication: PRODUCT USED FOR UNKNOWN INDICATION
     Dosage: 25/100 ? TAB T.I.D.
     Route: 048
  2. SIFROL [Suspect]
     Active Substance: PRAMIPEXOLE
     Route: 048
  3. SIFROL [Suspect]
     Active Substance: PRAMIPEXOLE
     Indication: PARKINSON^S DISEASE
     Route: 048
  4. CARBIDOPA AND LEVODOPA [Concomitant]
     Active Substance: CARBIDOPA\LEVODOPA
     Dosage: 25/100  1 TAB T.I.D.
     Route: 048

REACTIONS (5)
  - Drug withdrawal syndrome [Unknown]
  - Amnestic disorder [Unknown]
  - Insomnia [Recovering/Resolving]
  - Abnormal behaviour [Unknown]
  - Abnormal behaviour [Recovered/Resolved]
